FAERS Safety Report 6082244-9 (Version None)
Quarter: 2009Q1

REPORT INFORMATION
  Report Type: 
  Country: None (occurrence: None)
  Receive Date: 20090218
  Receipt Date: 20090209
  Transmission Date: 20090719
  Serious: Yes (Hospitalization)
  Sender: FDA-Public Use
  Company Number: US-BIOGENIDEC-2009BI004499

PATIENT
  Age: 54 Year
  Sex: Male

DRUGS (1)
  1. TYSABRI [Suspect]
     Indication: MULTIPLE SCLEROSIS
     Dates: start: 20081203

REACTIONS (9)
  - CATHETER RELATED INFECTION [None]
  - CHEST PAIN [None]
  - FALL [None]
  - FATIGUE [None]
  - FEELING HOT [None]
  - LIVER FUNCTION TEST ABNORMAL [None]
  - LOSS OF CONTROL OF LEGS [None]
  - PRURITUS [None]
  - TREMOR [None]
